FAERS Safety Report 16772593 (Version 1)
Quarter: 2019Q3

REPORT INFORMATION
  Report Type: Report from Study
  Country: FR (occurrence: FR)
  Receive Date: 20190904
  Receipt Date: 20190904
  Transmission Date: 20191005
  Serious: Yes (Other)
  Sender: FDA-Public Use
  Company Number: PHHY2015FR108374

PATIENT
  Age: 44 Year
  Sex: Female

DRUGS (1)
  1. GILENYA [Suspect]
     Active Substance: FINGOLIMOD HYDROCHLORIDE
     Indication: MULTIPLE SCLEROSIS
     Dosage: 0.5 MG, QD
     Route: 048
     Dates: start: 20150602

REACTIONS (9)
  - Lymphopenia [Recovered/Resolved]
  - Decreased appetite [Unknown]
  - Lacrimal disorder [Recovered/Resolved]
  - Macrocytosis [Unknown]
  - Mood altered [Recovered/Resolved]
  - Weight decreased [Unknown]
  - Iridocyclitis [Unknown]
  - Anaemia [Unknown]
  - Depression [Unknown]

NARRATIVE: CASE EVENT DATE: 20150707
